FAERS Safety Report 9826705 (Version 1)
Quarter: 2014Q1

REPORT INFORMATION
  Report Type: Spontaneous
  Country: US (occurrence: US)
  Receive Date: 20140117
  Receipt Date: 20140117
  Transmission Date: 20141002
  Serious: No
  Sender: FDA-Public Use
  Company Number: US-BIOGENIDEC-2014BI001134

PATIENT
  Sex: Female
  Weight: 64 kg

DRUGS (7)
  1. TECFIDERA [Suspect]
     Indication: PRODUCT USED FOR UNKNOWN INDICATION
     Route: 048
  2. TECFIDERA [Suspect]
     Indication: PRODUCT USED FOR UNKNOWN INDICATION
     Route: 048
  3. BUSPAR [Concomitant]
  4. COPAXONE [Concomitant]
  5. OXYBUTYNIN [Concomitant]
  6. FLEXERIL [Concomitant]
  7. TYLENOL [Concomitant]

REACTIONS (1)
  - Gastric pH decreased [Unknown]
